FAERS Safety Report 9907969 (Version 1)
Quarter: 2014Q1

REPORT INFORMATION
  Report Type: Spontaneous
  Country: CA (occurrence: CA)
  Receive Date: 20140219
  Receipt Date: 20140219
  Transmission Date: 20141002
  Serious: Yes (Other)
  Sender: FDA-Public Use
  Company Number: CA-MERCK-1402CAN007770

PATIENT
  Age: 60 Year
  Sex: Female

DRUGS (1)
  1. TEMODAL [Suspect]
     Indication: ANAPLASTIC OLIGODENDROGLIOMA
     Dosage: 400 MG, 5 X PER WEEK
     Route: 048
     Dates: start: 20130515, end: 201311

REACTIONS (1)
  - Neoplasm progression [Unknown]
